FAERS Safety Report 26021652 (Version 2)
Quarter: 2025Q4

REPORT INFORMATION
  Report Type: Spontaneous
  Country: JP (occurrence: JP)
  Receive Date: 20251110
  Receipt Date: 20251120
  Transmission Date: 20260117
  Serious: Yes (Other)
  Sender: ALEXION PHARMACEUTICALS
  Company Number: JP-ASTRAZENECA-202511JPN004376JP

PATIENT
  Age: 25 Year
  Sex: Female
  Weight: 44 kg

DRUGS (2)
  1. DAPAGLIFLOZIN [Suspect]
     Active Substance: DAPAGLIFLOZIN
     Indication: Weight control
     Route: 065
  2. MOUNJARO [Concomitant]
     Active Substance: TIRZEPATIDE
     Indication: Weight control

REACTIONS (9)
  - Altered state of consciousness [Unknown]
  - Palpitations [Unknown]
  - Electrolyte imbalance [Unknown]
  - Sinus arrhythmia [Unknown]
  - Blood glucose decreased [Unknown]
  - Weight decreased [Unknown]
  - Decreased appetite [Unknown]
  - Glucose urine present [Unknown]
  - Off label use [Unknown]
